FAERS Safety Report 10007198 (Version 3)
Quarter: 2014Q2

REPORT INFORMATION
  Report Type: Report from Study
  Country: US (occurrence: US)
  Receive Date: 20140313
  Receipt Date: 20140407
  Transmission Date: 20141212
  Serious: No
  Sender: FDA-Public Use
  Company Number: US-JNJFOC-20140302120

PATIENT
  Age: 41 Year
  Sex: Male

DRUGS (2)
  1. STELARA [Suspect]
     Indication: PSORIASIS
     Route: 058
     Dates: start: 20091221
  2. CYCLOSPORINE [Suspect]
     Indication: PSORIASIS
     Route: 065

REACTIONS (2)
  - Atrial fibrillation [Recovered/Resolved]
  - Oropharyngeal pain [Unknown]
